FAERS Safety Report 25047136 (Version 3)
Quarter: 2025Q2

REPORT INFORMATION
  Report Type: Spontaneous
  Country: CL (occurrence: CL)
  Receive Date: 20250306
  Receipt Date: 20250502
  Transmission Date: 20250716
  Serious: No
  Sender: PFIZER
  Company Number: CL-PFIZER INC-202500049043

PATIENT

DRUGS (1)
  1. GENOTROPIN [Suspect]
     Active Substance: SOMATROPIN

REACTIONS (1)
  - Device physical property issue [Unknown]
